FAERS Safety Report 9285437 (Version 1)
Quarter: 2013Q2

REPORT INFORMATION
  Report Type: Spontaneous
  Country: US (occurrence: None)
  Receive Date: 20130507
  Receipt Date: 20130507
  Transmission Date: 20140414
  Serious: Yes (Life-Threatening, Hospitalization)
  Sender: FDA-Public Use
  Company Number: US-MACLEODS PHARMA-000091

PATIENT
  Age: 53 Year
  Sex: Male

DRUGS (1)
  1. PANTOPRAZOLE (PANTOPRAZOLE) [Suspect]
     Indication: PROPHYLAXIS AGAINST GASTROINTESTINAL ULCER
     Dosage: 40.00-MG-1.0 DAYS/ ORAL
     Route: 048

REACTIONS (4)
  - Torsade de pointes [None]
  - Hypomagnesaemia [None]
  - Unresponsive to stimuli [None]
  - Ventricular tachycardia [None]
